FAERS Safety Report 5984671-4 (Version None)
Quarter: 2008Q4

REPORT INFORMATION
  Report Type: 
  Country: None (occurrence: None)
  Receive Date: 20081208
  Receipt Date: 20080817
  Transmission Date: 20090506
  Serious: No
  Sender: FDA-Public Use
  Company Number: US-AMGEN-KDL302049

PATIENT
  Sex: Female

DRUGS (1)
  1. ENBREL [Suspect]
     Indication: RHEUMATOID ARTHRITIS
     Route: 058
     Dates: start: 20080429

REACTIONS (8)
  - ANXIETY [None]
  - DRY EYE [None]
  - DRY MOUTH [None]
  - EYE IRRITATION [None]
  - HEADACHE [None]
  - HYPERTENSION [None]
  - OCULAR HYPERAEMIA [None]
  - VISUAL IMPAIRMENT [None]
